FAERS Safety Report 6411808-5 (Version None)
Quarter: 2009Q4

REPORT INFORMATION
  Report Type: 
  Country: None (occurrence: None)
  Receive Date: 20091023
  Receipt Date: 20091021
  Transmission Date: 20100525
  Serious: Yes (Other)
  Sender: FDA-Public Use
  Company Number: GB-BRISTOL-MYERS SQUIBB COMPANY-14732424

PATIENT
  Age: 31 Year
  Sex: Female
  Weight: 68 kg

DRUGS (4)
  1. SUSTIVA [Suspect]
     Indication: HIV INFECTION
     Dosage: COURSE -1
     Route: 048
     Dates: start: 20030529
  2. COMBIVIR [Suspect]
     Indication: HIV INFECTION
     Dosage: ZIDOVUDINE 300MG/LAMIVUDINE150MG; 1 DF=4(UNITS NOT SPECIFIED)
     Route: 048
     Dates: start: 20030529
  3. ACYCLOVIR [Suspect]
     Indication: ANTIVIRAL PROPHYLAXIS
     Route: 048
     Dates: start: 20030429
  4. SEPTRIN [Suspect]
     Indication: ANTIFUNGAL PROPHYLAXIS
     Route: 048
     Dates: start: 20030429, end: 20090804

REACTIONS (2)
  - ABORTION MISSED [None]
  - PREGNANCY [None]
